FAERS Safety Report 12753733 (Version 1)
Quarter: 2016Q3

REPORT INFORMATION
  Report Type: Report from Study
  Country: ES (occurrence: ES)
  Receive Date: 20160916
  Receipt Date: 20160916
  Transmission Date: 20161109
  Serious: Yes (Other)
  Sender: FDA-Public Use
  Company Number: ES-BAXTER-2016BAX046407

PATIENT
  Age: 66 Year

DRUGS (9)
  1. GENOXAL [Suspect]
     Active Substance: CYCLOPHOSPHAMIDE
     Indication: CHRONIC LYMPHOCYTIC LEUKAEMIA
     Dosage: COMPLETE DOSE
     Route: 065
     Dates: start: 20031101, end: 20111005
  2. RITUXIMAB [Suspect]
     Active Substance: RITUXIMAB
     Indication: CHRONIC LYMPHOCYTIC LEUKAEMIA
     Dosage: COMPLETE DOSE
     Route: 065
     Dates: start: 20031101, end: 20111005
  3. FLUDARABINE [Suspect]
     Active Substance: FLUDARABINE PHOSPHATE
     Dosage: COMPLETE DOSE
     Route: 065
     Dates: start: 20111102, end: 20111104
  4. RITUXIMAB [Suspect]
     Active Substance: RITUXIMAB
     Dosage: COMPLETE DOSE
     Route: 065
     Dates: start: 20111102, end: 20111104
  5. GENOXAL [Suspect]
     Active Substance: CYCLOPHOSPHAMIDE
     Dosage: COMPLETE DOSE
     Route: 065
     Dates: start: 20111102, end: 20111104
  6. RITUXIMAB [Suspect]
     Active Substance: RITUXIMAB
     Dosage: DELAYED DUE TO NON-HEMATOLOGIC TOXICITY
     Route: 065
     Dates: start: 20111214, end: 20111216
  7. FLUDARABINE [Suspect]
     Active Substance: FLUDARABINE PHOSPHATE
     Indication: CHRONIC LYMPHOCYTIC LEUKAEMIA
     Dosage: COMPLETE DOSE
     Route: 065
     Dates: start: 20031101, end: 20111005
  8. GENOXAL [Suspect]
     Active Substance: CYCLOPHOSPHAMIDE
     Dosage: DELAYED DUE TO NON-HEMATOLOGICAL TOXICITY
     Route: 065
     Dates: start: 20111214, end: 20111216
  9. FLUDARABINE [Suspect]
     Active Substance: FLUDARABINE PHOSPHATE
     Dosage: DELAYED DUE TO NON-HEMATOLOGIC TOXICITY
     Route: 065
     Dates: start: 20111214, end: 20111216

REACTIONS (6)
  - Respiratory disorder [Not Recovered/Not Resolved]
  - Platelet count decreased [Recovered/Resolved]
  - Platelet count decreased [Not Recovered/Not Resolved]
  - Platelet count decreased [Recovered/Resolved]
  - Constipation [Recovered/Resolved]
  - Nausea [Not Recovered/Not Resolved]

NARRATIVE: CASE EVENT DATE: 20110118
